FAERS Safety Report 4402184-8 (Version None)
Quarter: 2004Q3

REPORT INFORMATION
  Report Type: 
  Country: None (occurrence: None)
  Receive Date: 20040716
  Receipt Date: 20040702
  Transmission Date: 20050211
  Serious: Yes (Hospitalization)
  Sender: FDA-Public Use
  Company Number: 02100-JPN-04-0167

PATIENT
  Age: 80 Year
  Sex: Female

DRUGS (12)
  1. CILOSTAZOL [Suspect]
     Indication: CEREBRAL INFARCTION
     Dosage: 100 MG   ORAL
     Route: 048
     Dates: start: 19941001, end: 20040609
  2. GLIMEPIRIDE [Concomitant]
  3. FURSULTIAMINE [Concomitant]
  4. AZULENE SULFONATE SODIUM/L-GLUTAMINE [Concomitant]
  5. REBAMIPIDE [Concomitant]
  6. MAGNESIUM OXIDE [Concomitant]
  7. BIFIDOBACTERIUM [Concomitant]
  8. TRIAZOLAM [Concomitant]
  9. WARFARIN POTASSIUM [Concomitant]
  10. FUROSEMIDE [Concomitant]
  11. SPIRONOLACTONE [Concomitant]
  12. METILDIGOXIN [Concomitant]

REACTIONS (6)
  - ABNORMAL BEHAVIOUR [None]
  - ANOREXIA [None]
  - BLOOD PRESSURE SYSTOLIC INCREASED [None]
  - HAEMORRHAGIC CEREBRAL INFARCTION [None]
  - PLATELET COUNT DECREASED [None]
  - PROTHROMBIN TIME PROLONGED [None]
